FAERS Safety Report 10528822 (Version 1)
Quarter: 2014Q4

REPORT INFORMATION
  Report Type: Spontaneous
  Country: US (occurrence: US)
  Receive Date: 20141020
  Receipt Date: 20141020
  Transmission Date: 20150528
  Serious: No
  Sender: FDA-Public Use
  Company Number: US-ENDO PHARMACEUTICALS INC.-HCDA20140109

PATIENT
  Sex: Female

DRUGS (3)
  1. CARISOPRODOL TABLETS 350MG [Suspect]
     Active Substance: CARISOPRODOL
     Indication: MUSCLE RELAXANT THERAPY
     Route: 048
     Dates: start: 2012, end: 201302
  2. HYDROCODONE BITARTRATE/ACETAMINOPHEN 10MG/650MG [Suspect]
     Active Substance: ACETAMINOPHEN\HYDROCODONE BITARTRATE
     Indication: BACK PAIN
     Dosage: 40/2600 MG
     Route: 048
     Dates: start: 2012, end: 201302
  3. HYDROCODONE BITARTRATE/ACETAMINOPHEN 10MG/650MG [Suspect]
     Active Substance: ACETAMINOPHEN\HYDROCODONE BITARTRATE
     Indication: PROCEDURAL PAIN

REACTIONS (6)
  - Urticaria [Recovered/Resolved]
  - Rosacea [Recovered/Resolved]
  - Dry skin [Recovered/Resolved]
  - Pyrexia [Recovered/Resolved]
  - Acne [Recovered/Resolved]
  - Vision blurred [Recovered/Resolved]

NARRATIVE: CASE EVENT DATE: 2012
